APPROVED DRUG PRODUCT: AURYXIA
Active Ingredient: FERRIC CITRATE
Strength: EQ 210MG IRON
Dosage Form/Route: TABLET;ORAL
Application: N205874 | Product #001
Applicant: KERYX BIOPHARMACEUTICALS INC
Approved: Sep 5, 2014 | RLD: Yes | RS: Yes | Type: RX

PATENTS:
Patent 8093423 | Expires: Apr 21, 2026
Patent 10300039 | Expires: Jul 21, 2030
Patent 9387191 | Expires: Jul 21, 2030